FAERS Safety Report 19980062 (Version 3)
Quarter: 2022Q1

REPORT INFORMATION
  Report Type: Report from Study
  Country: US (occurrence: US)
  Receive Date: 20211021
  Receipt Date: 20220214
  Transmission Date: 20220423
  Serious: No
  Sender: FDA-Public Use
  Company Number: NVSC2021US240177

PATIENT
  Sex: Male

DRUGS (1)
  1. COSENTYX [Suspect]
     Active Substance: SECUKINUMAB
     Indication: Psoriasis
     Dosage: 300 MG(WEEK 0, 1, 2,3,4 AND EVERY 4 WEEKS THEREAFTER)
     Route: 058

REACTIONS (4)
  - Nervousness [Unknown]
  - Rash [Unknown]
  - Condition aggravated [Unknown]
  - Drug ineffective [Unknown]
